FAERS Safety Report 9209598 (Version 2)
Quarter: 2013Q2

REPORT INFORMATION
  Report Type: Spontaneous
  Country: SE (occurrence: SE)
  Receive Date: 20130404
  Receipt Date: 20130506
  Transmission Date: 20140414
  Serious: Yes (Other)
  Sender: FDA-Public Use
  Company Number: SE-AMGEN-SWESP2013023471

PATIENT
  Age: 65 Year
  Sex: Male

DRUGS (6)
  1. ENBREL [Suspect]
     Indication: PSORIASIS
     Dosage: 25 MG, WEEKLY DURING THREE WEEKS
     Route: 058
     Dates: start: 2013
  2. BEHEPAN [Concomitant]
     Dosage: 1 MG, 1X/DAY
  3. FELODIPINE [Concomitant]
     Dosage: 5 MG, 1X/DAY
  4. ENALAPRIL [Concomitant]
     Dosage: UNK UNK, QD
  5. SIMVASTATIN [Concomitant]
     Dosage: 40 MG, QD
  6. INSULIN [Concomitant]
     Dosage: UNK

REACTIONS (2)
  - Meningitis aseptic [Unknown]
  - Pneumonia [Unknown]
